FAERS Safety Report 8462030 (Version 5)
Quarter: 2013Q4

REPORT INFORMATION
  Report Type: Spontaneous
  Country: US (occurrence: US)
  Receive Date: 20120315
  Receipt Date: 20131106
  Transmission Date: 20140711
  Serious: Yes (Life-Threatening, Hospitalization, Other)
  Sender: FDA-Public Use
  Company Number: US-009507513-1203USA01455

PATIENT
  Age: 59 Year
  Sex: Male
  Weight: 132.45 kg

DRUGS (16)
  1. JANUVIA [Suspect]
     Indication: TYPE 2 DIABETES MELLITUS
     Dosage: 100 MG, QD
     Route: 048
  2. DIOVAN HCT [Concomitant]
     Indication: ESSENTIAL HYPERTENSION
     Dosage: 1 TABLET DAILY
     Route: 048
     Dates: start: 20120326
  3. LOSARTAN POTASSIUM AND HYDROCHLOROTHIAZIDE TABLETS [Concomitant]
     Dosage: 100-25
     Route: 048
  4. LOVAZA [Concomitant]
     Dosage: 1 G, BID
     Route: 048
  5. ALPRAZOLAM [Concomitant]
     Dosage: 1 MG, TID
     Route: 048
  6. LYRICA [Concomitant]
     Dosage: 100 MG, TID
     Route: 048
  7. LIPITOR [Concomitant]
     Dosage: 20 MG, QD
     Route: 048
  8. LIORAM [Concomitant]
     Dosage: 15 MG, HS
     Route: 048
  9. ACETAMINOPHEN (+) HYDROCODONE BITARTRATE [Concomitant]
     Dosage: 1-2 TABLETS EVERY 4 HOURS
     Route: 048
  10. LANTUS [Concomitant]
     Dosage: 50 TO 55
     Route: 058
  11. NOVOLOG [Concomitant]
     Dosage: 4U AM, 16U PM
     Route: 058
  12. ANDROGEL [Concomitant]
     Dosage: 2 PUMPS DAILY TRANSDERMAL
  13. SINGULAIR [Concomitant]
     Dosage: 10 MG, UNK
     Route: 048
  14. ALFUZOSIN HYDROCHLORIDE [Concomitant]
     Dosage: 10 MG, QD
     Route: 048
  15. FLECTOR [Concomitant]
     Dosage: UNK %, UNK
  16. AMOXICILLIN [Concomitant]
     Dosage: 875 MG, BID
     Route: 048

REACTIONS (12)
  - Medullary thyroid cancer [Not Recovered/Not Resolved]
  - Spleen disorder [Unknown]
  - Lymphocytosis [Not Recovered/Not Resolved]
  - Goitre [Unknown]
  - Rheumatoid arthritis [Not Recovered/Not Resolved]
  - Anxiety [Unknown]
  - Sinus disorder [Unknown]
  - Arthropathy [Unknown]
  - Rotator cuff syndrome [Unknown]
  - Pain in extremity [Unknown]
  - Arthropathy [Unknown]
  - Diabetes mellitus inadequate control [Unknown]
